FAERS Safety Report 5574135-4 (Version None)
Quarter: 2007Q4

REPORT INFORMATION
  Report Type: 
  Country: None (occurrence: None)
  Receive Date: 20071221
  Receipt Date: 20071205
  Transmission Date: 20080405
  Serious: Yes (Disabling, Other)
  Sender: FDA-Public Use
  Company Number: 2007EU002714

PATIENT
  Age: 63 Year
  Sex: Female

DRUGS (8)
  1. PROGRAF [Suspect]
     Indication: LIVER TRANSPLANT
     Dates: start: 19990101, end: 20050101
  2. PROGRAF [Suspect]
     Indication: LIVER TRANSPLANT
     Dates: start: 20050101
  3. CORTICOSTEROIDS [Concomitant]
  4. AZATHIOPRINE [Concomitant]
  5. GABAPENTIN [Concomitant]
  6. INTERFERON ALFA (INTERFERON ALFA) [Concomitant]
  7. RIBAVIRIN [Concomitant]
  8. PEGINTERFERON ALFA-2A (PEGINTERFERON ALFA-2A) [Concomitant]

REACTIONS (9)
  - COMPLICATIONS OF TRANSPLANTED LIVER [None]
  - CONDITION AGGRAVATED [None]
  - DRUG INEFFECTIVE [None]
  - HEPATITIS C [None]
  - PANCYTOPENIA [None]
  - PYREXIA [None]
  - RENAL FAILURE CHRONIC [None]
  - SPLENOMEGALY [None]
  - TYPE 1 DIABETES MELLITUS [None]
